FAERS Safety Report 23446231 (Version 6)
Quarter: 2024Q3

REPORT INFORMATION
  Report Type: Spontaneous
  Country: US (occurrence: US)
  Receive Date: 20240126
  Receipt Date: 20240711
  Transmission Date: 20241017
  Serious: Yes (Other)
  Sender: CSL BEHRING
  Company Number: US-BEH-2024167817

PATIENT
  Age: 22 Year
  Sex: Male

DRUGS (12)
  1. HUMATE-P [Suspect]
     Active Substance: HUMAN COAGULATION FACTOR VIII/VON WILLEBRAND FACTOR COMPLEX
     Indication: Von Willebrand^s disease
     Dosage: 2500 F8 UNITS (EVERY MONDAY, WEDNESDAY, FRIDAY AND/OR SUNDAY)
     Route: 042
     Dates: start: 201411
  2. HUMATE-P [Suspect]
     Active Substance: HUMAN COAGULATION FACTOR VIII/VON WILLEBRAND FACTOR COMPLEX
     Indication: Factor VIII deficiency
     Dosage: 2500 F8 UNITS, PRN
     Route: 042
     Dates: start: 201411
  3. HUMATE-P [Suspect]
     Active Substance: HUMAN COAGULATION FACTOR VIII/VON WILLEBRAND FACTOR COMPLEX
     Indication: Prophylaxis
     Dosage: 1 MAJOR DOSE PRN
     Route: 065
  4. HUMATE-P [Suspect]
     Active Substance: HUMAN COAGULATION FACTOR VIII/VON WILLEBRAND FACTOR COMPLEX
     Indication: Haemorrhage
     Dosage: 1 MINOR DOSE PRN
     Route: 065
  5. HUMATE-P [Suspect]
     Active Substance: HUMAN COAGULATION FACTOR VIII/VON WILLEBRAND FACTOR COMPLEX
     Indication: Haemorrhage
     Dosage: 1 MINOR DOSE, PRN
     Route: 065
  6. HUMATE-P [Suspect]
     Active Substance: HUMAN COAGULATION FACTOR VIII/VON WILLEBRAND FACTOR COMPLEX
     Indication: Contusion
     Dosage: 2 MAJOR DOSES, PRN
     Route: 065
  7. HUMATE-P [Suspect]
     Active Substance: HUMAN COAGULATION FACTOR VIII/VON WILLEBRAND FACTOR COMPLEX
     Indication: Haematoma
     Dosage: 1 MAJOR DOSE PRN
     Route: 065
     Dates: start: 202401
  8. HUMATE-P [Suspect]
     Active Substance: HUMAN COAGULATION FACTOR VIII/VON WILLEBRAND FACTOR COMPLEX
     Indication: Haemarthrosis
     Dosage: 2 MINOR DOSE PRN
     Route: 065
     Dates: start: 202401
  9. HUMATE-P [Suspect]
     Active Substance: HUMAN COAGULATION FACTOR VIII/VON WILLEBRAND FACTOR COMPLEX
     Indication: Haemarthrosis
     Dosage: 4 MAJOR AND 4 MINOR AND 2 PROPHY DOSES
     Route: 042
     Dates: start: 202403
  10. HUMATE-P [Suspect]
     Active Substance: HUMAN COAGULATION FACTOR VIII/VON WILLEBRAND FACTOR COMPLEX
     Indication: Muscle haemorrhage
     Dosage: 2 DF (2 UNKNOWN PRN DOSES), PRN
     Route: 042
  11. HUMATE-P [Suspect]
     Active Substance: HUMAN COAGULATION FACTOR VIII/VON WILLEBRAND FACTOR COMPLEX
     Indication: Haemarthrosis
     Dosage: 5 DF (UNKNOWN DOSES), PRN
     Route: 065
  12. TRANEXAMIC ACID [Concomitant]
     Active Substance: TRANEXAMIC ACID

REACTIONS (14)
  - Haemorrhage [Unknown]
  - Contusion [Unknown]
  - Haematoma [Unknown]
  - Gingival bleeding [Unknown]
  - Haemarthrosis [Unknown]
  - Joint swelling [Unknown]
  - Muscle haemorrhage [Unknown]
  - Haemorrhage [Unknown]
  - Haemarthrosis [Unknown]
  - Haemarthrosis [Not Recovered/Not Resolved]
  - Muscle haemorrhage [Unknown]
  - Haemarthrosis [Recovered/Resolved]
  - Haemorrhage [Recovered/Resolved]
  - Haematoma [Unknown]

NARRATIVE: CASE EVENT DATE: 20240101
